FAERS Safety Report 15221142 (Version 5)
Quarter: 2020Q1

REPORT INFORMATION
  Report Type: Spontaneous
  Country: PT (occurrence: PT)
  Receive Date: 20180731
  Receipt Date: 20200130
  Transmission Date: 20200409
  Serious: Yes (Life-Threatening, Hospitalization, Other)
  Sender: FDA-Public Use
  Company Number: PT-AUROBINDO-AUR-APL-2018-038679

PATIENT
  Age: 48 Year
  Sex: Female
  Weight: 77 kg

DRUGS (20)
  1. CASSIA VIRGINICA [SENNA OCCIDENTALIS] [Suspect]
     Active Substance: SENNA OCCIDENTALIS
     Indication: PRODUCT USED FOR UNKNOWN INDICATION
     Dosage: 20 MILLIGRAM
     Route: 065
  2. ORLISTAT CAPSULES [Interacting]
     Active Substance: ORLISTAT
     Indication: WEIGHT DECREASED
     Dosage: 50 MILLIGRAM, TWO TIMES A DAY
     Route: 048
     Dates: start: 201708
  3. FUROSEMIDE. [Interacting]
     Active Substance: FUROSEMIDE
     Dosage: 80 MILLIGRAM, ONCE A DAY
     Route: 065
  4. TOPIRAMATE. [Interacting]
     Active Substance: TOPIRAMATE
     Dosage: 20 MILLIGRAM, TWO TIMES A DAY
     Route: 048
     Dates: start: 201708, end: 201804
  5. PHENOLPHTHALEIN [Interacting]
     Active Substance: PHENOLPHTHALEIN
     Indication: WEIGHT DECREASED
     Dosage: 80 MILLIGRAM, TWO TIMES A DAY
     Route: 048
     Dates: start: 201708
  6. METFORMIN FILM-COATED TABLET [Suspect]
     Active Substance: METFORMIN HYDROCHLORIDE
     Indication: WEIGHT DECREASED
     Dosage: 400 MILLIGRAM, ONCE A DAY
     Route: 048
     Dates: start: 201708, end: 201804
  7. XENICAL [Suspect]
     Active Substance: ORLISTAT
     Indication: WEIGHT DECREASED
     Dosage: 100 MILLIGRAM, ONCE A DAY
     Route: 048
  8. CHROMIUM PICOLINATE [Interacting]
     Active Substance: CHROMIUM PICOLINATE
     Indication: WEIGHT DECREASED
     Dosage: 200 MICROGRAM, TWO TIMES A DAY
     Route: 048
     Dates: start: 201708
  9. CENTELLA ASIATICA NH [Interacting]
     Active Substance: CENTELLA ASIATICA\HERBALS
     Indication: WEIGHT DECREASED
     Dosage: 200 MILLIGRAM, TWO TIMES A DAY
     Route: 048
     Dates: start: 201708
  10. CHLORDIAZEPOXIDE. [Interacting]
     Active Substance: CHLORDIAZEPOXIDE
     Dosage: 10 MILLIGRAM, ONCE A DAY
     Route: 048
     Dates: start: 201708, end: 201804
  11. MINULET [Interacting]
     Active Substance: ETHINYL ESTRADIOL\GESTODENE
     Indication: CONTRACEPTION
     Dosage: 1 DOSAGE FORM, ONCE A DAY
     Route: 048
     Dates: start: 201711
  12. BUPROPION. [Interacting]
     Active Substance: BUPROPION
     Dosage: 100 MILLIGRAM, TWO TIMES A DAY
     Route: 048
     Dates: start: 201708, end: 201804
  13. FUROSEMIDE. [Interacting]
     Active Substance: FUROSEMIDE
     Indication: WEIGHT DECREASED
     Dosage: 40 MILLIGRAM, TWO TIMES A DAY
     Route: 048
     Dates: start: 201708, end: 201804
  14. CASCARA [Interacting]
     Active Substance: RHAMNUS PURSHIANA BARK EXTRACT
     Dosage: 200 MILLIGRAM, DAILY
     Route: 048
     Dates: start: 201708
  15. CHLORDIAZEPOXIDE. [Interacting]
     Active Substance: CHLORDIAZEPOXIDE
     Indication: WEIGHT DECREASED
     Dosage: 20 MILLIGRAM, ONCE A DAY, 10MG
     Route: 048
     Dates: start: 201708, end: 201804
  16. FLECAINIDE [Concomitant]
     Active Substance: FLECAINIDE
     Indication: VENTRICULAR EXTRASYSTOLES
     Dosage: 100 MILLIGRAM, ONCE A DAY
     Route: 048
     Dates: start: 201605
  17. BUPROPION. [Interacting]
     Active Substance: BUPROPION
     Indication: WEIGHT DECREASED
     Dosage: 100 MILLIGRAM, TWO TIMES A DAY
     Route: 048
     Dates: start: 201708, end: 201804
  18. METFORMIN [Interacting]
     Active Substance: METFORMIN HYDROCHLORIDE
     Indication: WEIGHT DECREASED
     Dosage: 200MG
     Route: 048
     Dates: start: 201708, end: 201804
  19. TOPIRAMATE. [Interacting]
     Active Substance: TOPIRAMATE
     Indication: WEIGHT DECREASED
     Dosage: 10 MILLIGRAM, TWO TIMES A DAY
     Route: 048
     Dates: start: 201708, end: 201804
  20. CASCARA [Interacting]
     Active Substance: RHAMNUS PURSHIANA BARK EXTRACT
     Indication: WEIGHT DECREASED
     Dosage: 2 MILLIGRAM, DAILY
     Route: 048
     Dates: start: 201708, end: 201804

REACTIONS (10)
  - Product use in unapproved indication [Unknown]
  - Thalamic infarction [Not Recovered/Not Resolved]
  - Fatigue [Recovering/Resolving]
  - Headache [Recovering/Resolving]
  - Bradyphrenia [Recovering/Resolving]
  - Psychomotor retardation [Recovering/Resolving]
  - Off label use [Unknown]
  - Cerebral venous thrombosis [Recovering/Resolving]
  - Drug interaction [Unknown]
  - Intentional product misuse [Unknown]

NARRATIVE: CASE EVENT DATE: 201708
